FAERS Safety Report 19984005 (Version 1)
Quarter: 2021Q4

REPORT INFORMATION
  Report Type: Spontaneous
  Country: US (occurrence: US)
  Receive Date: 20211021
  Receipt Date: 20211021
  Transmission Date: 20220303
  Serious: Yes (Hospitalization)
  Sender: FDA-Public Use
  Company Number: US-ROCHE-2940376

PATIENT
  Sex: Male

DRUGS (29)
  1. XOLAIR [Suspect]
     Active Substance: OMALIZUMAB
     Indication: Asthma
     Dosage: STRENGTH: 75MG/0.5 ML?INJECT ONE - 75MG SYR + ONE - 150MG SYR (FOR A TOTAL DOSE OF 225MG)
     Route: 058
     Dates: start: 20190914
  2. XOLAIR [Suspect]
     Active Substance: OMALIZUMAB
  3. XOLAIR [Suspect]
     Active Substance: OMALIZUMAB
  4. XOLAIR [Suspect]
     Active Substance: OMALIZUMAB
     Dosage: STRENGTH: 150MG/ML?INJECT ONE - 75MG SYR + ONE - 150MG SYR (FOR A TOTAL DOSE OF 225MG)
     Route: 058
     Dates: start: 20190914
  5. XOLAIR [Suspect]
     Active Substance: OMALIZUMAB
  6. XOLAIR [Suspect]
     Active Substance: OMALIZUMAB
  7. COVID-19 VACCINE NOS [Suspect]
     Active Substance: COVID-19 VACCINE NOS
     Indication: Product used for unknown indication
     Route: 065
  8. ALENDRONATE [Concomitant]
     Active Substance: ALENDRONATE SODIUM
  9. ARIPIPRAZOLE [Concomitant]
     Active Substance: ARIPIPRAZOLE
  10. ASPIRIN [Concomitant]
     Active Substance: ASPIRIN
  11. AZITHROMYCIN ANHYDROUS [Concomitant]
     Active Substance: AZITHROMYCIN ANHYDROUS
  12. CARVEDILOL [Concomitant]
     Active Substance: CARVEDILOL
  13. DULOXETINE [Concomitant]
     Active Substance: DULOXETINE
  14. GABAPENTIN [Concomitant]
     Active Substance: GABAPENTIN
  15. LAMOTRIGINE [Concomitant]
     Active Substance: LAMOTRIGINE
  16. MECLIZINE [Concomitant]
     Active Substance: MECLIZINE HYDROCHLORIDE
  17. MONTELUKAST [Concomitant]
     Active Substance: MONTELUKAST SODIUM
  18. NALTREXONE [Concomitant]
     Active Substance: NALTREXONE
  19. NEXLIZET [Concomitant]
     Active Substance: BEMPEDOIC ACID\EZETIMIBE
  20. NYSTATIN [Concomitant]
     Active Substance: NYSTATIN
  21. OMEPRAZOLE [Concomitant]
     Active Substance: OMEPRAZOLE
  22. OXYCODONE [Concomitant]
     Active Substance: OXYCODONE
  23. PREDNISONE [Concomitant]
     Active Substance: PREDNISONE
  24. PROAIR HFA [Concomitant]
     Active Substance: ALBUTEROL SULFATE
  25. ROSUVASTATIN [Concomitant]
     Active Substance: ROSUVASTATIN
  26. TAMSULOSIN [Concomitant]
     Active Substance: TAMSULOSIN
  27. TRAZODONE [Concomitant]
     Active Substance: TRAZODONE HYDROCHLORIDE
  28. WIXELA INHUB [Concomitant]
     Active Substance: FLUTICASONE PROPIONATE\SALMETEROL XINAFOATE
  29. FLUOXETINE [Concomitant]
     Active Substance: FLUOXETINE HYDROCHLORIDE

REACTIONS (1)
  - Asthma [Unknown]
